FAERS Safety Report 13020435 (Version 1)
Quarter: 2016Q4

REPORT INFORMATION
  Report Type: Spontaneous
  Country: ZA (occurrence: ZA)
  Receive Date: 20161212
  Receipt Date: 20161212
  Transmission Date: 20170207
  Serious: Yes (Other)
  Sender: FDA-Public Use
  Company Number: ZA-ENDO PHARMACEUTICALS INC.-2016-007240

PATIENT
  Sex: Male

DRUGS (1)
  1. AVEED [Suspect]
     Active Substance: TESTOSTERONE UNDECANOATE
     Indication: HYPOGONADISM MALE
     Dosage: 1000MG/4 ML
     Route: 030

REACTIONS (1)
  - Pulmonary microemboli [Recovering/Resolving]

NARRATIVE: CASE EVENT DATE: 20161205
